FAERS Safety Report 18455492 (Version 1)
Quarter: 2020Q4

REPORT INFORMATION
  Report Type: Spontaneous
  Country: US (occurrence: US)
  Receive Date: 20201103
  Receipt Date: 20201103
  Transmission Date: 20210114
  Serious: No
  Sender: FDA-Public Use
  Company Number: US-GLENMARK PHARMACEUTICALS-2020GMK049884

PATIENT

DRUGS (1)
  1. TACROZ OINTMENT 0.1% [Suspect]
     Active Substance: TACROLIMUS
     Indication: ORAL DISORDER
     Dosage: UNK, BID (IN LOWER INNER LIP)
     Route: 061
     Dates: start: 20200926, end: 20200928

REACTIONS (3)
  - Product use issue [Unknown]
  - Product use in unapproved indication [Unknown]
  - Application site dysaesthesia [Recovered/Resolved]

NARRATIVE: CASE EVENT DATE: 20200926
